FAERS Safety Report 24814103 (Version 1)
Quarter: 2025Q1

REPORT INFORMATION
  Report Type: Spontaneous
  Country: CA (occurrence: CA)
  Receive Date: 20250107
  Receipt Date: 20250107
  Transmission Date: 20250409
  Serious: Yes (Death, Life-Threatening, Hospitalization, Disabling, Other)
  Sender: TEVA
  Company Number: CA-TEVA-VS-3283875

PATIENT
  Age: 44 Year
  Sex: Female
  Weight: 97 kg

DRUGS (62)
  1. ALBUTEROL SULFATE [Suspect]
     Active Substance: ALBUTEROL SULFATE
     Indication: Product used for unknown indication
     Route: 065
  2. PREDNISONE [Suspect]
     Active Substance: PREDNISONE
     Indication: Condition aggravated
     Route: 065
  3. PREDNISONE [Suspect]
     Active Substance: PREDNISONE
     Indication: Condition aggravated
     Route: 048
  4. CIMZIA [Suspect]
     Active Substance: CERTOLIZUMAB PEGOL
     Indication: Rheumatoid arthritis
     Route: 005
  5. CIMZIA [Suspect]
     Active Substance: CERTOLIZUMAB PEGOL
     Indication: Rheumatoid arthritis
     Route: 058
  6. CODEINE [Suspect]
     Active Substance: CODEINE
     Indication: Rheumatoid arthritis
     Route: 065
  7. CAFFEINE [Suspect]
     Active Substance: CAFFEINE
     Indication: Rheumatoid arthritis
     Route: 048
  8. CAFFEINE [Suspect]
     Active Substance: CAFFEINE
     Indication: Rheumatoid arthritis
     Route: 065
  9. ORENCIA [Suspect]
     Active Substance: ABATACEPT
     Indication: Rheumatoid arthritis
     Route: 065
  10. ACETAMINOPHEN\OXYCODONE HYDROCHLORIDE [Suspect]
     Active Substance: ACETAMINOPHEN\OXYCODONE HYDROCHLORIDE
     Indication: Product used for unknown indication
     Route: 065
  11. CETIRIZINE [Suspect]
     Active Substance: CETIRIZINE HYDROCHLORIDE
     Indication: Off label use
     Route: 048
  12. ACETAMINOPHEN [Suspect]
     Active Substance: ACETAMINOPHEN
     Indication: Rheumatoid arthritis
     Route: 048
  13. ACETAMINOPHEN [Suspect]
     Active Substance: ACETAMINOPHEN
     Indication: Rheumatoid arthritis
     Route: 058
  14. ALENDRONIC ACID [Suspect]
     Active Substance: ALENDRONIC ACID
     Indication: Rheumatoid arthritis
     Route: 048
  15. CELEBREX [Suspect]
     Active Substance: CELECOXIB
     Indication: Off label use
     Route: 048
  16. CELEBREX [Suspect]
     Active Substance: CELECOXIB
     Indication: Off label use
     Route: 048
  17. CELEBREX [Suspect]
     Active Substance: CELECOXIB
     Indication: Off label use
     Route: 065
  18. CELEBREX [Suspect]
     Active Substance: CELECOXIB
     Indication: Off label use
     Route: 065
  19. CELEBREX [Suspect]
     Active Substance: CELECOXIB
     Indication: Off label use
     Dosage: 1 EVERY 1 DAYS
     Route: 048
  20. CELEBREX [Suspect]
     Active Substance: CELECOXIB
     Indication: Off label use
     Route: 048
  21. CELEBREX [Suspect]
     Active Substance: CELECOXIB
     Indication: Off label use
     Route: 048
  22. AZATHIOPRINE [Suspect]
     Active Substance: AZATHIOPRINE
     Indication: Rheumatoid arthritis
     Route: 058
  23. CHLORAPREP [Suspect]
     Active Substance: CHLORHEXIDINE GLUCONATE\ISOPROPYL ALCOHOL
     Indication: Product used for unknown indication
     Route: 058
  24. CHLORAPREP [Suspect]
     Active Substance: CHLORHEXIDINE GLUCONATE\ISOPROPYL ALCOHOL
     Indication: Product used for unknown indication
     Route: 065
  25. CHOLECALCIFEROL [Suspect]
     Active Substance: CHOLECALCIFEROL
     Indication: Rheumatoid arthritis
     Route: 065
  26. ACETAMINOPHEN\CAFFEINE\CODEINE [Suspect]
     Active Substance: ACETAMINOPHEN\CAFFEINE\CODEINE
     Indication: Product used for unknown indication
     Route: 048
  27. ASACOL [Suspect]
     Active Substance: MESALAMINE
     Indication: Crohn^s disease
     Route: 065
  28. DICLOFENAC POTASSIUM [Suspect]
     Active Substance: DICLOFENAC POTASSIUM
     Indication: Rheumatoid arthritis
     Route: 048
  29. DICLOFENAC POTASSIUM [Suspect]
     Active Substance: DICLOFENAC POTASSIUM
     Indication: Rheumatoid arthritis
     Route: 065
  30. DICLOFENAC POTASSIUM [Suspect]
     Active Substance: DICLOFENAC POTASSIUM
     Indication: Rheumatoid arthritis
     Route: 065
  31. ARAVA [Suspect]
     Active Substance: LEFLUNOMIDE
     Indication: Rheumatoid arthritis
     Route: 065
  32. ARAVA [Suspect]
     Active Substance: LEFLUNOMIDE
     Indication: Rheumatoid arthritis
     Route: 065
  33. ARAVA [Suspect]
     Active Substance: LEFLUNOMIDE
     Indication: Rheumatoid arthritis
     Route: 065
  34. ARAVA [Suspect]
     Active Substance: LEFLUNOMIDE
     Indication: Rheumatoid arthritis
     Route: 048
  35. ARAVA [Suspect]
     Active Substance: LEFLUNOMIDE
     Indication: Rheumatoid arthritis
     Route: 005
  36. ERELZI [Suspect]
     Active Substance: ETANERCEPT-SZZS
     Indication: Rheumatoid arthritis
     Dosage: DOSE FORM: NOT SPECIFIED
     Route: 058
  37. FLUOROMETHOLONE [Suspect]
     Active Substance: FLUOROMETHOLONE
     Indication: Product used for unknown indication
     Route: 065
  38. DICLOFENAC SODIUM [Suspect]
     Active Substance: DICLOFENAC SODIUM
     Indication: Product used for unknown indication
     Route: 058
  39. DICLOFENAC SODIUM [Suspect]
     Active Substance: DICLOFENAC SODIUM
     Indication: Product used for unknown indication
     Route: 047
  40. DICLOFENAC SODIUM [Suspect]
     Active Substance: DICLOFENAC SODIUM
     Indication: Product used for unknown indication
     Route: 047
  41. ALENDRONATE SODIUM [Suspect]
     Active Substance: ALENDRONATE SODIUM
     Indication: Rheumatoid arthritis
     Route: 048
  42. ALENDRONATE SODIUM [Suspect]
     Active Substance: ALENDRONATE SODIUM
     Indication: Rheumatoid arthritis
     Route: 016
  43. ALENDRONATE SODIUM [Suspect]
     Active Substance: ALENDRONATE SODIUM
     Indication: Rheumatoid arthritis
     Route: 058
  44. VITAMIN C [Suspect]
     Active Substance: ASCORBIC ACID
     Indication: Product used for unknown indication
     Route: 065
  45. ALENDRONATE SODIUM\CHOLECALCIFEROL [Suspect]
     Active Substance: ALENDRONATE SODIUM\CHOLECALCIFEROL
     Indication: Rheumatoid arthritis
     Route: 058
  46. ATIVAN [Suspect]
     Active Substance: LORAZEPAM
     Indication: Rheumatoid arthritis
     Route: 065
  47. RITUXIMAB [Suspect]
     Active Substance: RITUXIMAB
     Indication: Rheumatoid arthritis
     Route: 016
  48. RITUXIMAB [Suspect]
     Active Substance: RITUXIMAB
     Indication: Rheumatoid arthritis
     Route: 042
  49. ACTEMRA [Suspect]
     Active Substance: TOCILIZUMAB
     Indication: Rheumatoid arthritis
     Route: 042
  50. ACTEMRA [Suspect]
     Active Substance: TOCILIZUMAB
     Indication: Rheumatoid arthritis
     Route: 058
  51. ACTEMRA [Suspect]
     Active Substance: TOCILIZUMAB
     Indication: Rheumatoid arthritis
     Route: 048
  52. ACTEMRA [Suspect]
     Active Substance: TOCILIZUMAB
     Indication: Rheumatoid arthritis
     Route: 042
  53. ACTEMRA [Suspect]
     Active Substance: TOCILIZUMAB
     Indication: Rheumatoid arthritis
     Route: 042
  54. ACTEMRA [Suspect]
     Active Substance: TOCILIZUMAB
     Indication: Rheumatoid arthritis
     Route: 042
  55. ACTEMRA [Suspect]
     Active Substance: TOCILIZUMAB
     Indication: Rheumatoid arthritis
     Route: 042
  56. CALCIUM [Suspect]
     Active Substance: CALCIUM
     Indication: Product used for unknown indication
     Route: 065
  57. ADALIMUMAB [Suspect]
     Active Substance: ADALIMUMAB
     Indication: Product used for unknown indication
     Route: 058
  58. ADALIMUMAB [Suspect]
     Active Substance: ADALIMUMAB
     Indication: Product used for unknown indication
     Route: 058
  59. CHLORHEXIDINE [Suspect]
     Active Substance: CHLORHEXIDINE
     Indication: Rheumatoid arthritis
     Route: 065
  60. CHLORHEXIDINE [Suspect]
     Active Substance: CHLORHEXIDINE
     Indication: Rheumatoid arthritis
     Route: 058
  61. CETIRIZINE [Suspect]
     Active Substance: CETIRIZINE HYDROCHLORIDE
     Indication: Product used for unknown indication
     Route: 016
  62. CETIRIZINE [Suspect]
     Active Substance: CETIRIZINE HYDROCHLORIDE
     Indication: Product used for unknown indication
     Route: 048

REACTIONS (94)
  - Breast cancer stage III [Fatal]
  - Lower respiratory tract infection [Fatal]
  - Hypoaesthesia [Fatal]
  - Exposure during pregnancy [Fatal]
  - Joint range of motion decreased [Fatal]
  - Dry mouth [Fatal]
  - Rectal haemorrhage [Fatal]
  - Ill-defined disorder [Fatal]
  - Grip strength decreased [Fatal]
  - Foot deformity [Fatal]
  - Gastrointestinal disorder [Fatal]
  - Impaired healing [Fatal]
  - Insomnia [Fatal]
  - Arthralgia [Fatal]
  - Sleep disorder due to a general medical condition [Fatal]
  - Frequent bowel movements [Fatal]
  - Amnesia [Fatal]
  - Blister [Fatal]
  - Rheumatoid arthritis [Fatal]
  - Anxiety [Fatal]
  - C-reactive protein abnormal [Fatal]
  - Bone erosion [Fatal]
  - Facet joint syndrome [Fatal]
  - Exostosis [Fatal]
  - Fibromyalgia [Fatal]
  - Dislocation of vertebra [Fatal]
  - Abdominal pain [Fatal]
  - Glossodynia [Fatal]
  - Muscular weakness [Fatal]
  - Pericarditis [Fatal]
  - Autoimmune disorder [Fatal]
  - Liver injury [Fatal]
  - Drug hypersensitivity [Fatal]
  - Maternal exposure during pregnancy [Fatal]
  - Dyspnoea [Fatal]
  - Bursitis [Fatal]
  - Alopecia [Fatal]
  - Porphyria acute [Fatal]
  - Folliculitis [Fatal]
  - Pancreatitis [Fatal]
  - Delirium [Fatal]
  - Asthenia [Fatal]
  - Chest pain [Fatal]
  - Respiratory disorder [Fatal]
  - Ear infection [Fatal]
  - Deep vein thrombosis postoperative [Fatal]
  - Discomfort [Fatal]
  - Gait disturbance [Fatal]
  - Dizziness [Fatal]
  - Hypersensitivity [Fatal]
  - Hypertension [Fatal]
  - Arthritis [Fatal]
  - Injury [Fatal]
  - Headache [Fatal]
  - Lupus-like syndrome [Fatal]
  - Asthma [Fatal]
  - Decreased appetite [Fatal]
  - Diarrhoea [Fatal]
  - Contusion [Fatal]
  - Lupus vulgaris [Fatal]
  - Hepatic cirrhosis [Fatal]
  - Duodenal ulcer perforation [Fatal]
  - Infection [Fatal]
  - Confusional state [Fatal]
  - Psoriatic arthropathy [Fatal]
  - Joint stiffness [Fatal]
  - Pneumonia [Fatal]
  - Arthropathy [Fatal]
  - Grip strength [Fatal]
  - Hepatic enzyme increased [Fatal]
  - Depression [Fatal]
  - Inflammation [Fatal]
  - Hand deformity [Fatal]
  - Retinitis [Fatal]
  - Condition aggravated [Fatal]
  - Irritable bowel syndrome [Fatal]
  - Crohn^s disease [Fatal]
  - Drug tolerance decreased [Fatal]
  - Dyspepsia [Fatal]
  - Abdominal pain upper [Fatal]
  - Liver disorder [Fatal]
  - Pulmonary fibrosis [Fatal]
  - Hypercholesterolaemia [Fatal]
  - Infusion related reaction [Fatal]
  - General physical health deterioration [Fatal]
  - Colitis ulcerative [Fatal]
  - Anti-cyclic citrullinated peptide antibody positive [Fatal]
  - Pemphigus [Fatal]
  - Adjustment disorder with depressed mood [Fatal]
  - Abdominal discomfort [Fatal]
  - Blood cholesterol increased [Fatal]
  - Fatigue [Fatal]
  - Feeling hot [Fatal]
  - Helicobacter infection [Fatal]
